FAERS Safety Report 8230208-9 (Version None)
Quarter: 2012Q1

REPORT INFORMATION
  Report Type: 
  Country: None (occurrence: None)
  Receive Date: 20120323
  Receipt Date: 20120308
  Transmission Date: 20120608
  Serious: Yes (Death, Other)
  Sender: FDA-Public Use
  Company Number: IT-CELGENEUS-083-20785-09042042

PATIENT
  Age: 71 Year

DRUGS (6)
  1. BORTEZOMIB [Suspect]
     Dosage: 1.3 MILLIGRAM/SQ. METER
     Route: 041
  2. THALIDOMIDE [Suspect]
     Dosage: 50 MILLIGRAM
     Route: 048
  3. MELPHALAN HYDROCHLORIDE [Suspect]
     Dosage: 9 MILLIGRAM/SQ. METER
     Route: 048
  4. BORTEZOMIB [Suspect]
     Dosage: 1.3 MILLIGRAM/SQ. METER
     Route: 065
  5. BORTEZOMIB [Suspect]
     Dosage: 1.3 MICROGRAM
     Route: 065
  6. PREDNISONE TAB [Suspect]
     Dosage: 60 MILLIGRAM/SQ. METER
     Route: 048

REACTIONS (33)
  - ANGINA PECTORIS [None]
  - FEBRILE NEUTROPENIA [None]
  - CARDIAC FAILURE [None]
  - NAUSEA [None]
  - FATIGUE [None]
  - PNEUMONIA [None]
  - MULTIPLE MYELOMA [None]
  - SEPSIS [None]
  - CARDIAC DISORDER [None]
  - HAEMORRHAGE [None]
  - NEUTROPENIA [None]
  - PERIPHERAL SENSORY NEUROPATHY [None]
  - PULMONARY EMBOLISM [None]
  - DEEP VEIN THROMBOSIS [None]
  - DIARRHOEA [None]
  - CONFUSIONAL STATE [None]
  - LUNG DISORDER [None]
  - PERICARDIAL EFFUSION [None]
  - ARRHYTHMIA [None]
  - MYOCARDIAL INFARCTION [None]
  - VIRAL INFECTION [None]
  - CONSTIPATION [None]
  - PYREXIA [None]
  - RASH [None]
  - EMBOLISM VENOUS [None]
  - NEURALGIA [None]
  - THROMBOCYTOPENIA [None]
  - NEUROPATHY PERIPHERAL [None]
  - NEOPLASM MALIGNANT [None]
  - INFECTION [None]
  - VOMITING [None]
  - ANAEMIA [None]
  - OEDEMA PERIPHERAL [None]
